FAERS Safety Report 10047285 (Version 1)
Quarter: 2014Q1

REPORT INFORMATION
  Report Type: Spontaneous
  Country: US (occurrence: US)
  Receive Date: 20140331
  Receipt Date: 20140331
  Transmission Date: 20141002
  Serious: No
  Sender: FDA-Public Use
  Company Number: US-MYLANLABS-2013S1027783

PATIENT
  Age: 41 Year
  Sex: Female
  Weight: 95.26 kg

DRUGS (7)
  1. FENTANYL TRANSDERMAL SYSTEM [Suspect]
     Indication: PAIN
     Dosage: CHANGES Q72H
     Route: 062
     Dates: start: 20131205
  2. FENTANYL TRANSDERMAL SYSTEM [Suspect]
     Indication: FIBROMYALGIA
     Dosage: CHANGES Q72H
     Route: 062
     Dates: start: 20131205
  3. DILANTIN [Concomitant]
  4. MIRAPEX [Concomitant]
  5. CELEXA [Concomitant]
  6. NORCO [Concomitant]
  7. LYRICA [Concomitant]

REACTIONS (3)
  - Drug effect decreased [Not Recovered/Not Resolved]
  - Pain [Not Recovered/Not Resolved]
  - Activities of daily living impaired [Not Recovered/Not Resolved]
